FAERS Safety Report 6822643-8 (Version None)
Quarter: 2010Q3

REPORT INFORMATION
  Report Type: 
  Country: None (occurrence: None)
  Receive Date: 20100706
  Receipt Date: 20100706
  Transmission Date: 20110219
  Serious: No
  Sender: FDA-Public Use
  Company Number: None

PATIENT
  Age: 16 Year
  Sex: Male
  Weight: 58.9676 kg

DRUGS (2)
  1. ORACEA [Suspect]
     Indication: ACNE
     Dosage: 40MG 1 CAPSULE DAILY
     Dates: start: 20100619, end: 20100622
  2. ORACEA [Suspect]
     Indication: ROSACEA
     Dosage: 40MG 1 CAPSULE DAILY
     Dates: start: 20100619, end: 20100622

REACTIONS (1)
  - CONVULSION [None]
